FAERS Safety Report 8836188 (Version 2)
Quarter: 2013Q4

REPORT INFORMATION
  Report Type: Spontaneous
  Country: FR (occurrence: FR)
  Receive Date: 20121011
  Receipt Date: 20131105
  Transmission Date: 20140711
  Serious: Yes (Hospitalization)
  Sender: FDA-Public Use
  Company Number: FR-ROCHE-1144441

PATIENT
  Age: 12 Year
  Sex: Male

DRUGS (1)
  1. ROCEPHINE [Suspect]
     Indication: ENCEPHALITIS
     Route: 042
     Dates: start: 20120829, end: 20120923

REACTIONS (2)
  - Abdominal pain [Recovered/Resolved]
  - Microlithiasis [Recovered/Resolved]
